FAERS Safety Report 8728723 (Version 26)
Quarter: 2014Q3

REPORT INFORMATION
  Report Type: Spontaneous
  Country: US (occurrence: US)
  Receive Date: 20120817
  Receipt Date: 20140711
  Transmission Date: 20150326
  Serious: Yes (Death, Other)
  Sender: FDA-Public Use
  Company Number: PHEH2012US016006

PATIENT
  Age: 57 Year
  Sex: Female
  Weight: 103.86 kg

DRUGS (17)
  1. SIMVASTATIN. [Concomitant]
     Active Substance: SIMVASTATIN
  2. BEVACIZUMAB [Concomitant]
     Active Substance: BEVACIZUMAB
  3. TAXOL [Concomitant]
     Active Substance: PACLITAXEL
  4. TEMAZEPAM. [Concomitant]
     Active Substance: TEMAZEPAM
  5. ACTOS [Concomitant]
     Active Substance: PIOGLITAZONE HYDROCHLORIDE
  6. FOSAMAX [Concomitant]
     Active Substance: ALENDRONATE SODIUM
  7. AMOXICILLIN. [Concomitant]
     Active Substance: AMOXICILLIN
  8. ZOLOFT [Concomitant]
     Active Substance: SERTRALINE HYDROCHLORIDE
  9. PENICILLIN [Concomitant]
     Active Substance: PENICILLIN
  10. PACLITAXEL. [Concomitant]
     Active Substance: PACLITAXEL
  11. SYNTHROID [Concomitant]
     Active Substance: LEVOTHYROXINE SODIUM
  12. OXYCODONE [Concomitant]
     Active Substance: OXYCODONE
  13. EVEROLIMUS [Concomitant]
     Active Substance: EVEROLIMUS
  14. GLYBURIDE. [Concomitant]
     Active Substance: GLYBURIDE
  15. ZOMETA [Suspect]
     Active Substance: ZOLEDRONIC ACID
     Dosage: 4 MG,
     Route: 042
     Dates: start: 200907, end: 2010
  16. LEVOTHYROXINE [Concomitant]
     Active Substance: LEVOTHYROXINE
  17. TETRACYCLINE [Concomitant]
     Active Substance: TETRACYCLINE

REACTIONS (156)
  - Dyslipidaemia [Unknown]
  - Left ventricular dysfunction [Unknown]
  - Cystitis [Unknown]
  - Urinary incontinence [Unknown]
  - Atrial fibrillation [Unknown]
  - Cardiomyopathy [Unknown]
  - Diverticulum intestinal [Unknown]
  - Azotaemia [Unknown]
  - Malignant neoplasm progression [Unknown]
  - Muscular weakness [Unknown]
  - Dehydration [Unknown]
  - Tuberculosis [Unknown]
  - Haemorrhoids [Unknown]
  - Depression [Recovering/Resolving]
  - Mood swings [Unknown]
  - Osteitis [Unknown]
  - Diarrhoea [Unknown]
  - Somnolence [Unknown]
  - Arthralgia [Unknown]
  - Constipation [Unknown]
  - Headache [Unknown]
  - Hypoaesthesia [Unknown]
  - Death [Fatal]
  - Osteonecrosis of jaw [Unknown]
  - Bone loss [Unknown]
  - Bone erosion [Unknown]
  - Post procedural discharge [Unknown]
  - Rectal haemorrhage [Unknown]
  - Peripheral swelling [Unknown]
  - Orthopnoea [Unknown]
  - Candida infection [Recovering/Resolving]
  - Metastases to lymph nodes [Unknown]
  - Osteoporosis [Unknown]
  - Skin necrosis [Unknown]
  - Connective tissue inflammation [Unknown]
  - Stomatitis [Unknown]
  - Blood urine present [Unknown]
  - Bursitis [Unknown]
  - Chest pain [Unknown]
  - Pain in jaw [Unknown]
  - Ulcer [Unknown]
  - Oedema peripheral [Unknown]
  - Deep vein thrombosis [Unknown]
  - Palpitations [Unknown]
  - Dyspnoea exertional [Unknown]
  - Hyperlipidaemia [Unknown]
  - Injury [Unknown]
  - Hyperkalaemia [Unknown]
  - Osteopenia [Unknown]
  - Breast cancer [Unknown]
  - Cardiomegaly [Unknown]
  - Sleep apnoea syndrome [Unknown]
  - Osteoarthritis [Unknown]
  - Pruritus [Unknown]
  - Spinal osteoarthritis [Unknown]
  - Vertigo [Unknown]
  - Weight decreased [Unknown]
  - Fatigue [Unknown]
  - Dysgeusia [Unknown]
  - Neck pain [Unknown]
  - Decreased appetite [Unknown]
  - Musculoskeletal pain [Unknown]
  - Snoring [Unknown]
  - Dry skin [Unknown]
  - Jaw fracture [Unknown]
  - Bone lesion [Unknown]
  - Diabetes mellitus [Unknown]
  - Neuropathy peripheral [Recovering/Resolving]
  - Spinal compression fracture [Unknown]
  - Pneumonia [Unknown]
  - Anaemia [Unknown]
  - Limb discomfort [Unknown]
  - Dermatomyositis [Unknown]
  - Arrhythmia [Unknown]
  - Aortic arteriosclerosis [Unknown]
  - Tricuspid valve incompetence [Unknown]
  - Mental status changes [Unknown]
  - Aortic disorder [Unknown]
  - Musculoskeletal chest pain [Unknown]
  - Gastrointestinal haemorrhage [Unknown]
  - Haematemesis [Unknown]
  - Vomiting [Unknown]
  - Crying [Unknown]
  - Dizziness [Unknown]
  - Spinal pain [Unknown]
  - Ear pain [Unknown]
  - Alopecia [Unknown]
  - Impaired healing [Unknown]
  - Osteosclerosis [Unknown]
  - Metastases to spine [Unknown]
  - Trigeminal neuralgia [Unknown]
  - Bronchitis [Unknown]
  - Diastolic dysfunction [Unknown]
  - Renal failure acute [Unknown]
  - Pleural effusion [Unknown]
  - Arthritis [Unknown]
  - Haemangioma of bone [Unknown]
  - Lymphoedema [Unknown]
  - Pertussis [Unknown]
  - Gastrooesophageal reflux disease [Unknown]
  - Intervertebral disc protrusion [Unknown]
  - Weight increased [Unknown]
  - Mucosal inflammation [Unknown]
  - Asthenia [Unknown]
  - Myalgia [Unknown]
  - Rash [Recovered/Resolved]
  - Toothache [Unknown]
  - Mitral valve incompetence [Unknown]
  - Metastases to bone [Unknown]
  - Spondylitis [Unknown]
  - Mediastinal mass [Unknown]
  - Intervertebral disc degeneration [Unknown]
  - Hyperkeratosis [Unknown]
  - Vertebral lesion [Unknown]
  - Telangiectasia [Unknown]
  - Intervertebral disc annular tear [Unknown]
  - Pain [Unknown]
  - Pain in extremity [Unknown]
  - Skin exfoliation [Unknown]
  - Paraesthesia [Unknown]
  - Swelling [Unknown]
  - Asthma [Unknown]
  - Thyroid disorder [Unknown]
  - Anxiety [Unknown]
  - Pericardial effusion [Unknown]
  - Phlebitis [Unknown]
  - Cardiac failure congestive [Unknown]
  - Jaw disorder [Unknown]
  - Hiatus hernia [Unknown]
  - Cervical spinal stenosis [Unknown]
  - Cervical radiculopathy [Unknown]
  - Hypertension [Unknown]
  - Dermatitis atopic [Unknown]
  - Skin ulcer [Unknown]
  - Ecchymosis [Unknown]
  - Autoimmune disorder [Unknown]
  - Neutropenia [Recovering/Resolving]
  - Dyspepsia [Unknown]
  - Exposed bone in jaw [Unknown]
  - Hypothyroidism [Unknown]
  - Dermatitis [Unknown]
  - Dyspnoea [Unknown]
  - Metastases to lung [Unknown]
  - Aortic dilatation [Unknown]
  - Vertebral foraminal stenosis [Unknown]
  - Optic ischaemic neuropathy [Unknown]
  - Tachycardia [Unknown]
  - Insomnia [Unknown]
  - Arthropathy [Unknown]
  - Migraine [Unknown]
  - Breast cancer metastatic [Unknown]
  - Sinus bradycardia [Unknown]
  - Gastrointestinal viral infection [Unknown]
  - Muscle spasms [Unknown]
  - Back pain [Unknown]
  - Nausea [Unknown]

NARRATIVE: CASE EVENT DATE: 200911
